FAERS Safety Report 8940061 (Version 1)
Quarter: 2012Q4

REPORT INFORMATION
  Report Type: 
  Country: US (occurrence: US)
  Receive Date: 20121121
  Receipt Date: 20121121
  Transmission Date: 20130627
  Serious: Yes (Other)
  Sender: FDA-Public Use
  Company Number: US-ASTELLAS-CID000000002103981

PATIENT
  Sex: Male

DRUGS (6)
  1. AVASTIN [Suspect]
     Indication: MALIGNANT RESPIRATORY TRACT NEOPLASM
     Route: 065
     Dates: start: 20051118, end: 20051214
  2. TARCEVA [Suspect]
     Indication: MALIGNANT RESPIRATORY TRACT NEOPLASM
     Route: 065
  3. TAXOTERE [Concomitant]
     Route: 065
     Dates: start: 20051118, end: 20051214
  4. TAXOTERE [Concomitant]
     Route: 065
     Dates: end: 20060104
  5. ZOMETA [Concomitant]
     Route: 065
     Dates: start: 20051118, end: 20051214
  6. ZOMETA [Concomitant]
     Route: 065
     Dates: end: 20060104

REACTIONS (3)
  - Metastasis [Unknown]
  - Drug intolerance [Unknown]
  - Rash [Unknown]
